FAERS Safety Report 7700513-0 (Version None)
Quarter: 2011Q3

REPORT INFORMATION
  Report Type: 
  Country: None (occurrence: None)
  Receive Date: 20110822
  Receipt Date: 20110808
  Transmission Date: 20111222
  Serious: Yes (Other)
  Sender: FDA-Public Use
  Company Number: HK-MYLANLABS-2011S1016740

PATIENT
  Age: 47 Year
  Sex: Male

DRUGS (1)
  1. FINASTERIDE [Suspect]
     Indication: ANDROGENETIC ALOPECIA
     Route: 065

REACTIONS (2)
  - FLOPPY IRIS SYNDROME [None]
  - CATARACT SUBCAPSULAR [None]
